FAERS Safety Report 7260674-7 (Version None)
Quarter: 2011Q1

REPORT INFORMATION
  Report Type: 
  Country: None (occurrence: None)
  Receive Date: 20110130
  Receipt Date: 20101111
  Transmission Date: 20110831
  Serious: No
  Sender: FDA-Public Use
  Company Number: US-ABBOTT-10P-163-0684846-00

PATIENT
  Age: 63 Year
  Sex: Female

DRUGS (6)
  1. OXYCODONE [Concomitant]
     Indication: PAIN
  2. LISINOPRIL [Concomitant]
     Indication: HYPERTENSION
     Dosage: DAILY
  3. HYDROCODONE [Concomitant]
     Indication: BREAKTHROUGH PAIN
  4. XANAX [Concomitant]
     Indication: ANXIETY
  5. XANAX [Concomitant]
     Indication: INSOMNIA
  6. HUMIRA [Suspect]
     Indication: PSORIASIS
     Dates: start: 20100901

REACTIONS (2)
  - PSORIASIS [None]
  - INJECTION SITE PAIN [None]
